FAERS Safety Report 18954905 (Version 1)
Quarter: 2021Q1

REPORT INFORMATION
  Report Type: Other
  Country: US (occurrence: US)
  Receive Date: 20210301
  Receipt Date: 20210301
  Transmission Date: 20210420
  Serious: Yes (Other)
  Sender: FDA-Public Use
  Company Number: US-ROCHE-2776926

PATIENT
  Sex: Male

DRUGS (1)
  1. VALCYTE [Suspect]
     Active Substance: VALGANCICLOVIR HYDROCHLORIDE
     Indication: RENAL TRANSPLANT
     Dosage: 1 TAB QD
     Route: 065

REACTIONS (3)
  - Intentional product use issue [Unknown]
  - Cytomegalovirus infection [Unknown]
  - Off label use [Unknown]
